FAERS Safety Report 19502929 (Version 2)
Quarter: 2021Q3

REPORT INFORMATION
  Report Type: Spontaneous
  Country: US (occurrence: US)
  Receive Date: 20210707
  Receipt Date: 20210715
  Transmission Date: 20211014
  Serious: Yes (Other)
  Sender: FDA-Public Use
  Company Number: US-PURDUE PHARMA-USA-2021-0272008

PATIENT
  Sex: Male

DRUGS (1)
  1. BUTRANS [Suspect]
     Active Substance: BUPRENORPHINE
     Indication: PAIN MANAGEMENT
     Dosage: 7.5 MCG/HR, WEEKLY
     Route: 062

REACTIONS (5)
  - Unevaluable event [Unknown]
  - Application site erythema [Not Recovered/Not Resolved]
  - Disability [Unknown]
  - Product adhesion issue [Unknown]
  - Application site rash [Unknown]
